FAERS Safety Report 9495080 (Version 2)
Quarter: 2013Q4

REPORT INFORMATION
  Report Type: Spontaneous
  Country: DE (occurrence: DE)
  Receive Date: 20130903
  Receipt Date: 20131018
  Transmission Date: 20140711
  Serious: Yes (Hospitalization, Other)
  Sender: FDA-Public Use
  Company Number: DE-JNJFOC-20130900802

PATIENT
  Age: 75 Year
  Sex: Male

DRUGS (3)
  1. XARELTO [Suspect]
     Indication: THROMBOSIS PROPHYLAXIS
     Route: 048
     Dates: start: 20120913
  2. XARELTO [Suspect]
     Indication: PULMONARY EMBOLISM
     Route: 048
     Dates: start: 20120913
  3. SEVIKAR [Concomitant]
     Route: 065

REACTIONS (3)
  - Arterial occlusive disease [Recovered/Resolved]
  - Peripheral artery aneurysm [Recovered/Resolved]
  - Peripheral artery thrombosis [Recovered/Resolved]
